FAERS Safety Report 17610785 (Version 2)
Quarter: 2020Q2

REPORT INFORMATION
  Report Type: Spontaneous
  Country: US (occurrence: US)
  Receive Date: 20200401
  Receipt Date: 20200514
  Transmission Date: 20200713
  Serious: Yes (Other)
  Sender: FDA-Public Use
  Company Number: US-THERAPEUTICSMD-2020TMD01502

PATIENT
  Sex: Female
  Weight: 44.44 kg

DRUGS (18)
  1. IMVEXXY [Suspect]
     Active Substance: ESTRADIOL
     Indication: DYSPAREUNIA
     Dosage: 10 ?G, 2X/WEEK USUALLY BEFORE BED
     Route: 067
     Dates: start: 2019, end: 201912
  2. OXYCODONE [Concomitant]
     Active Substance: OXYCODONE
     Dosage: 20 MG, 4X/DAY
     Dates: end: 20200317
  3. SOMA [Concomitant]
     Active Substance: CARISOPRODOL
  4. LYRICA [Concomitant]
     Active Substance: PREGABALIN
  5. IMVEXXY [Suspect]
     Active Substance: ESTRADIOL
     Indication: SCAR
     Dosage: UNK
     Route: 067
     Dates: start: 2020
  6. UNSPECIFIED INTESTINAL BLOCKAGE MEDICATION [Concomitant]
  7. UNSPECIFIED SHINGLES SHOT [Suspect]
     Active Substance: UNSPECIFIED INGREDIENT
     Dosage: 1 DOSAGE UNITS
  8. CLONAZEPAM. [Concomitant]
     Active Substance: CLONAZEPAM
     Dosage: UNK, 2X/DAY
  9. PHENERGAN [Concomitant]
     Active Substance: PROMETHAZINE HYDROCHLORIDE
     Dosage: UNK, AS NEEDED
  10. CARAFATE [Concomitant]
     Active Substance: SUCRALFATE
  11. UNSPECIFIED SHINGLES SHOT [Suspect]
     Active Substance: UNSPECIFIED INGREDIENT
     Dosage: 1 DOSAGE UNITS
     Dates: start: 2020, end: 2020
  12. OXYCODONE [Concomitant]
     Active Substance: OXYCODONE
     Dosage: 10 MG, 3X/DAY
     Dates: start: 20200317
  13. MIRALAX [Concomitant]
     Active Substance: POLYETHYLENE GLYCOL 3350
  14. IMVEXXY [Suspect]
     Active Substance: ESTRADIOL
     Indication: INADEQUATE LUBRICATION
  15. MORPHINE [Concomitant]
     Active Substance: MORPHINE
     Dosage: 2 DOSAGE UNITS, 1X/DAY
  16. ZOFRAN [Concomitant]
     Active Substance: ONDANSETRON HYDROCHLORIDE
     Dosage: UNK, AS NEEDED
  17. BELSOMRA [Concomitant]
     Active Substance: SUVOREXANT
  18. PROTONIX [Concomitant]
     Active Substance: PANTOPRAZOLE SODIUM

REACTIONS (36)
  - Neoplasm malignant [Not Recovered/Not Resolved]
  - Viral infection [Not Recovered/Not Resolved]
  - Oropharyngeal pain [Not Recovered/Not Resolved]
  - Rash pruritic [Not Recovered/Not Resolved]
  - Erythema [Not Recovered/Not Resolved]
  - Oedema [Not Recovered/Not Resolved]
  - Headache [Not Recovered/Not Resolved]
  - Ear infection staphylococcal [Not Recovered/Not Resolved]
  - Urticaria [Not Recovered/Not Resolved]
  - Burning sensation [Not Recovered/Not Resolved]
  - Immune system disorder [Not Recovered/Not Resolved]
  - Diarrhoea [Unknown]
  - Pain [Unknown]
  - Spinal osteoarthritis [Unknown]
  - Syncope [Not Recovered/Not Resolved]
  - Sepsis [Not Recovered/Not Resolved]
  - Hypoaesthesia [Recovered/Resolved]
  - Rhinorrhoea [Not Recovered/Not Resolved]
  - Stress [Not Recovered/Not Resolved]
  - Vomiting [Not Recovered/Not Resolved]
  - Weight decreased [Not Recovered/Not Resolved]
  - Lip exfoliation [Recovering/Resolving]
  - Cellulitis [Not Recovered/Not Resolved]
  - Multiple sclerosis [Not Recovered/Not Resolved]
  - Hormone level abnormal [Recovering/Resolving]
  - Crying [Not Recovered/Not Resolved]
  - Irritability [Not Recovered/Not Resolved]
  - Pruritus [Not Recovered/Not Resolved]
  - Feeling cold [Not Recovered/Not Resolved]
  - Abscess oral [Not Recovered/Not Resolved]
  - Catatonia [Not Recovered/Not Resolved]
  - Alopecia [Not Recovered/Not Resolved]
  - Cough [Not Recovered/Not Resolved]
  - Limb discomfort [Not Recovered/Not Resolved]
  - Tooth discolouration [Not Recovered/Not Resolved]
  - Dry mouth [Not Recovered/Not Resolved]

NARRATIVE: CASE EVENT DATE: 2019
